FAERS Safety Report 11004564 (Version 1)
Quarter: 2015Q2

REPORT INFORMATION
  Report Type: Report from Study
  Country: US (occurrence: US)
  Receive Date: 20150409
  Receipt Date: 20150409
  Transmission Date: 20150821
  Serious: Yes (Hospitalization, Other)
  Sender: FDA-Public Use
  Company Number: US-ABBVIE-15P-163-1370259-00

PATIENT
  Age: 22 Year
  Sex: Female
  Weight: 85.81 kg

DRUGS (8)
  1. HUMIRA [Suspect]
     Active Substance: ADALIMUMAB
     Indication: CROHN^S DISEASE
     Route: 058
     Dates: start: 20091030, end: 20091030
  2. HUMIRA [Suspect]
     Active Substance: ADALIMUMAB
     Route: 058
     Dates: start: 20091113, end: 20091113
  3. HUMIRA [Suspect]
     Active Substance: ADALIMUMAB
     Route: 058
     Dates: start: 20091127, end: 201206
  4. HUMIRA [Suspect]
     Active Substance: ADALIMUMAB
     Route: 058
     Dates: start: 201208, end: 20150303
  5. BENTYL [Concomitant]
     Active Substance: DICYCLOMINE HYDROCHLORIDE
     Indication: PRODUCT USED FOR UNKNOWN INDICATION
  6. HUMIRA [Suspect]
     Active Substance: ADALIMUMAB
     Route: 058
     Dates: start: 20150303
  7. NUVARING [Concomitant]
     Active Substance: ETHINYL ESTRADIOL\ETONOGESTREL
     Indication: PRODUCT USED FOR UNKNOWN INDICATION
  8. VITAMIN B12 [Concomitant]
     Active Substance: CYANOCOBALAMIN
     Indication: PRODUCT USED FOR UNKNOWN INDICATION

REACTIONS (19)
  - Intestinal stenosis [Unknown]
  - Drug specific antibody present [Recovered/Resolved]
  - Fungal infection [Recovered/Resolved]
  - Crohn^s disease [Not Recovered/Not Resolved]
  - Intestinal mucosal hypertrophy [Unknown]
  - Bronchitis [Recovered/Resolved]
  - Viral infection [Recovered/Resolved]
  - Gastrointestinal motility disorder [Recovered/Resolved]
  - Tooth abscess [Recovered/Resolved]
  - Gastrointestinal motility disorder [Not Recovered/Not Resolved]
  - Infection transmission via personal contact [Unknown]
  - Crohn^s disease [Recovered/Resolved]
  - Cellulitis [Recovered/Resolved]
  - Colitis [Unknown]
  - Red blood cell sedimentation rate increased [Unknown]
  - Clostridium difficile infection [Recovered/Resolved]
  - Skin exfoliation [Recovered/Resolved]
  - Rectal haemorrhage [Not Recovered/Not Resolved]
  - Lymphadenopathy [Unknown]

NARRATIVE: CASE EVENT DATE: 201103
